FAERS Safety Report 8202828-9 (Version None)
Quarter: 2012Q1

REPORT INFORMATION
  Report Type: 
  Country: None (occurrence: None)
  Receive Date: 20120312
  Receipt Date: 20120312
  Transmission Date: 20120608
  Serious: No
  Sender: FDA-Public Use
  Company Number: None

PATIENT
  Age: 61 Year
  Sex: Male
  Weight: 88.904 kg

DRUGS (2)
  1. BRENTUXIMAB [Suspect]
     Indication: NON-HODGKIN'S LYMPHOMA RECURRENT
     Dosage: 160MG
     Route: 041
     Dates: start: 20110813, end: 20120307
  2. BRENTUXIMAB [Concomitant]
     Dosage: 160MG
     Route: 041
     Dates: start: 20110813, end: 20120307

REACTIONS (1)
  - NEUTROPENIA [None]
